FAERS Safety Report 7569953-7 (Version None)
Quarter: 2011Q2

REPORT INFORMATION
  Report Type: 
  Country: None (occurrence: None)
  Receive Date: 20110624
  Receipt Date: 20110621
  Transmission Date: 20111010
  Serious: No
  Sender: FDA-Public Use
  Company Number: US-PFIZER INC-2011101121

PATIENT
  Sex: Female

DRUGS (1)
  1. ZITHROMAX [Suspect]
     Indication: CULTURE THROAT POSITIVE
     Dosage: 250 MG, UNK
     Route: 048
     Dates: start: 20110503, end: 20110505

REACTIONS (2)
  - MALAISE [None]
  - ABDOMINAL PAIN LOWER [None]
